FAERS Safety Report 15501140 (Version 2)
Quarter: 2018Q4

REPORT INFORMATION
  Report Type: Report from Study
  Country: CA (occurrence: CA)
  Receive Date: 20181015
  Receipt Date: 20181116
  Transmission Date: 20190205
  Serious: Yes (Other)
  Sender: FDA-Public Use
  Company Number: CA-SHIRE-CA201839097

PATIENT

DRUGS (2)
  1. LEVAQUIN [Concomitant]
     Active Substance: LEVOFLOXACIN
     Indication: PRODUCT USED FOR UNKNOWN INDICATION
  2. HUMAN NORMAL IMMUNOGLOBULIN; LIQUID 20 [Suspect]
     Active Substance: HUMAN IMMUNOGLOBULIN G
     Indication: PRIMARY IMMUNODEFICIENCY SYNDROME
     Dosage: 12 G, 1X/WEEK
     Route: 058
     Dates: start: 20181005

REACTIONS (9)
  - Nervousness [Unknown]
  - Abdominal mass [Unknown]
  - Blood pressure increased [Unknown]
  - Anxiety [Unknown]
  - Pallor [Unknown]
  - Abdominal tenderness [Unknown]
  - Injection site haemorrhage [Unknown]
  - Lower respiratory tract infection [Unknown]
  - Mass [Not Recovered/Not Resolved]

NARRATIVE: CASE EVENT DATE: 20181005
